FAERS Safety Report 9360679 (Version 1)
Quarter: 2013Q2

REPORT INFORMATION
  Report Type: Spontaneous
  Country: US (occurrence: None)
  Receive Date: 20130620
  Receipt Date: 20130620
  Transmission Date: 20140414
  Serious: Yes (Hospitalization, Disabling)
  Sender: FDA-Public Use
  Company Number: None

PATIENT
  Age: 52 Year
  Sex: Male

DRUGS (8)
  1. HUMIRA [Suspect]
     Indication: PSORIASIS
     Route: 058
  2. DIGOXIN [Concomitant]
  3. CALCIUM [Concomitant]
  4. DOXYCYCLINE [Concomitant]
  5. MULTIVITAMIN [Concomitant]
  6. PROTONIX [Concomitant]
  7. SUBOXONE [Concomitant]
  8. VITAMIN B [Concomitant]

REACTIONS (3)
  - Weight decreased [None]
  - Cholelithiasis [None]
  - Cholecystitis [None]
